FAERS Safety Report 9546626 (Version 2)
Quarter: 2013Q4

REPORT INFORMATION
  Report Type: Spontaneous
  Country: US (occurrence: US)
  Receive Date: 20130924
  Receipt Date: 20131031
  Transmission Date: 20140711
  Serious: Yes (Other)
  Sender: FDA-Public Use
  Company Number: US-AMGEN-USASP2013065437

PATIENT
  Age: 83 Year
  Sex: Female
  Weight: 67.57 kg

DRUGS (6)
  1. PROLIA [Suspect]
     Indication: OSTEOPOROSIS POSTMENOPAUSAL
     Dosage: 60 UNK, Q6MO
     Route: 058
     Dates: start: 20130104, end: 20130907
  2. ANTIHYPERTENSIVES [Concomitant]
  3. CENTRUM                            /02217401/ [Concomitant]
  4. BIOTIN [Concomitant]
  5. CENTRUM SILVER                     /02363801/ [Concomitant]
  6. COQ10                              /00517201/ [Concomitant]

REACTIONS (11)
  - Acrochordon [Not Recovered/Not Resolved]
  - Paraesthesia [Recovering/Resolving]
  - Eye swelling [Recovering/Resolving]
  - Lip swelling [Not Recovered/Not Resolved]
  - Eye irritation [Unknown]
  - Intraocular pressure increased [Unknown]
  - Ocular hyperaemia [Unknown]
  - Dermatitis [Recovering/Resolving]
  - Rash [Not Recovered/Not Resolved]
  - Swelling face [Not Recovered/Not Resolved]
  - Erythema [Recovered/Resolved]
